FAERS Safety Report 16966331 (Version 2)
Quarter: 2019Q4

REPORT INFORMATION
  Report Type: Spontaneous
  Country: US (occurrence: US)
  Receive Date: 20191028
  Receipt Date: 20191107
  Transmission Date: 20200122
  Serious: No
  Sender: FDA-Public Use
  Company Number: US-BAUSCH-BL-2019-026324

PATIENT
  Age: 37 Year
  Sex: Female
  Weight: 43.13 kg

DRUGS (1)
  1. ATRALIN [Suspect]
     Active Substance: TRETINOIN
     Indication: ACNE
     Dosage: STARTED 4-5 YEARS AGO, AS DIRECTED; ONCE A DAY
     Route: 061
     Dates: end: 2019

REACTIONS (1)
  - Rash [Recovered/Resolved]

NARRATIVE: CASE EVENT DATE: 201904
